FAERS Safety Report 19311908 (Version 1)
Quarter: 2021Q2

REPORT INFORMATION
  Report Type: Spontaneous
  Country: PL (occurrence: PL)
  Receive Date: 20210527
  Receipt Date: 20210527
  Transmission Date: 20210717
  Serious: Yes (Other)
  Sender: FDA-Public Use
  Company Number: PL-ASTRAZENECA-2021A439692

PATIENT
  Sex: Female

DRUGS (1)
  1. ZOLMILES [Suspect]
     Active Substance: ZOLMITRIPTAN
     Indication: MIGRAINE
     Route: 065

REACTIONS (10)
  - Muscle spasms [Unknown]
  - Oropharyngeal pain [Unknown]
  - Somnolence [Unknown]
  - Respiration abnormal [Unknown]
  - Myalgia [Unknown]
  - Chest discomfort [Unknown]
  - Paraesthesia [Unknown]
  - Tinnitus [Unknown]
  - Discomfort [Unknown]
  - Throat tightness [Unknown]
